FAERS Safety Report 26149952 (Version 1)
Quarter: 2025Q4

REPORT INFORMATION
  Report Type: Spontaneous
  Country: US (occurrence: None)
  Receive Date: 20251211
  Receipt Date: 20251211
  Transmission Date: 20260118
  Serious: Yes (Hospitalization)
  Sender: FDA-CTU
  Company Number: None

PATIENT
  Age: 56 Year
  Sex: Female
  Weight: 104 kg

DRUGS (3)
  1. PEMBROLIZUMAB [Suspect]
     Active Substance: PEMBROLIZUMAB
     Indication: Glioblastoma
     Route: 042
     Dates: start: 20220217, end: 20220913
  2. TEMODAR [Suspect]
     Active Substance: TEMOZOLOMIDE
     Indication: Glioblastoma
     Route: 048
  3. REGORAFENIB [Suspect]
     Active Substance: REGORAFENIB

REACTIONS (4)
  - Seizure [None]
  - Malaise [None]
  - Therapy interrupted [None]
  - Metastases to meninges [None]

NARRATIVE: CASE EVENT DATE: 20221019
